FAERS Safety Report 4649822-2 (Version None)
Quarter: 2005Q2

REPORT INFORMATION
  Report Type: 
  Country: None (occurrence: None)
  Receive Date: 20050427
  Receipt Date: 20050420
  Transmission Date: 20051028
  Serious: Yes (Disabling)
  Sender: FDA-Public Use
  Company Number: 2005AP02424

PATIENT
  Age: 70 Year
  Sex: Male

DRUGS (4)
  1. CASODEX [Suspect]
     Indication: PROSTATE CANCER
     Dosage: 80 MG DAILY PO
     Route: 048
     Dates: start: 20041201
  2. LEUPLIN [Concomitant]
  3. AMLODIN [Concomitant]
  4. LASIX [Concomitant]

REACTIONS (1)
  - RENAL IMPAIRMENT [None]
